FAERS Safety Report 7311057-2 (Version None)
Quarter: 2011Q1

REPORT INFORMATION
  Report Type: 
  Country: None (occurrence: None)
  Receive Date: 20110224
  Receipt Date: 20110215
  Transmission Date: 20110831
  Serious: Yes (Other)
  Sender: FDA-Public Use
  Company Number: US-PFIZER INC-2010164296

PATIENT
  Sex: Female
  Weight: 100 kg

DRUGS (4)
  1. LISINOPRIL [Concomitant]
     Indication: HYPERTENSION
     Dosage: UNK
  2. DETROL LA [Suspect]
     Indication: BLADDER DISORDER
     Dosage: 4 MG, 1X/DAY
     Route: 048
     Dates: start: 20070101, end: 20100101
  3. DILTIAZEM [Concomitant]
     Indication: HYPERTENSION
     Dosage: UNK
  4. METFORMIN [Concomitant]
     Indication: DIABETES MELLITUS
     Dosage: 500 MG, DAILY

REACTIONS (1)
  - AMNESIA [None]
